FAERS Safety Report 21773520 (Version 1)
Quarter: 2022Q4

REPORT INFORMATION
  Report Type: Spontaneous
  Country: FR (occurrence: FR)
  Receive Date: 20221223
  Receipt Date: 20221223
  Transmission Date: 20230113
  Serious: Yes (Other)
  Sender: FDA-Public Use
  Company Number: None

PATIENT
  Age: 93 Year
  Sex: Male

DRUGS (10)
  1. VANCOMYCIN [Suspect]
     Active Substance: VANCOMYCIN
     Indication: Eye infection
     Dosage: UNK
     Route: 031
     Dates: start: 20221128, end: 20221128
  2. VORICONAZOLE [Suspect]
     Active Substance: VORICONAZOLE
     Indication: Eye infection
     Dosage: UNK
     Route: 031
     Dates: start: 20221129, end: 20221130
  3. POLYETHYLENE GLYCOLS [Suspect]
     Active Substance: POLYETHYLENE GLYCOLS
     Indication: Constipation
     Dosage: UNK
     Route: 048
     Dates: start: 20221126
  4. CEFTAZIDIME [Suspect]
     Active Substance: CEFTAZIDIME
     Indication: Eye infection
     Dosage: UNK
     Route: 031
     Dates: start: 20221128, end: 20221130
  5. HYDROCHLOROTHIAZIDE [Suspect]
     Active Substance: HYDROCHLOROTHIAZIDE
     Indication: Hypertension
     Dosage: UNK
     Route: 048
     Dates: start: 20221126
  6. MORPHINE SULFATE [Suspect]
     Active Substance: MORPHINE SULFATE
     Indication: Pain
     Dosage: UNK
     Route: 048
     Dates: start: 20221130
  7. VALACYCLOVIR HYDROCHLORIDE [Concomitant]
     Active Substance: VALACYCLOVIR HYDROCHLORIDE
     Indication: Product used for unknown indication
     Dosage: UNK
     Route: 048
     Dates: start: 20221125
  8. ATROPINE [Concomitant]
     Active Substance: ATROPINE
     Indication: Product used for unknown indication
     Dosage: UNK
     Route: 031
     Dates: start: 20221126
  9. SIMVASTATIN [Concomitant]
     Active Substance: SIMVASTATIN
     Indication: Product used for unknown indication
     Dosage: UNK
     Route: 065
     Dates: start: 20221126
  10. FLUCONAZOLE [Concomitant]
     Active Substance: FLUCONAZOLE
     Indication: Product used for unknown indication
     Dosage: UNK
     Route: 048
     Dates: start: 20221201

REACTIONS (1)
  - Hyponatraemia [Not Recovered/Not Resolved]

NARRATIVE: CASE EVENT DATE: 20221130
